FAERS Safety Report 5154378-4 (Version None)
Quarter: 2006Q4

REPORT INFORMATION
  Report Type: 
  Country: None (occurrence: None)
  Receive Date: 20061114
  Receipt Date: 20061031
  Transmission Date: 20070319
  Serious: Yes (Other)
  Sender: FDA-Public Use
  Company Number: 2005162587

PATIENT

DRUGS (5)
  1. VIBRAMYCIN [Suspect]
     Indication: GENITOURINARY CHLAMYDIA INFECTION
     Dosage: 100 MG (100 MG, 1 IN 1 D), PLACENTAL
     Dates: start: 20051002, end: 20051015
  2. FLUCONAZOLE [Suspect]
     Indication: GENITOURINARY CHLAMYDIA INFECTION
     Dosage: 50 MG (50 MG, 1 IN 1 D), PLACENTAL
     Dates: start: 20061002, end: 20061009
  3. CEFTRIAXONE [Concomitant]
  4. METRONIDAZOLE [Concomitant]
  5. NAXOGYN (NIMORAZOLE) [Concomitant]

REACTIONS (5)
  - ABORTION INDUCED [None]
  - CEREBRAL HYGROMA [None]
  - DRUG EXPOSURE DURING PREGNANCY [None]
  - PREGNANCY [None]
  - VENTRICULAR SEPTAL DEFECT [None]
